FAERS Safety Report 7864943-9 (Version None)
Quarter: 2011Q4

REPORT INFORMATION
  Report Type: 
  Country: None (occurrence: None)
  Receive Date: 20111028
  Receipt Date: 20111018
  Transmission Date: 20120403
  Serious: Yes (Hospitalization)
  Sender: FDA-Public Use
  Company Number: US-BAYER-2011-010214

PATIENT
  Age: 17 Year
  Sex: Female
  Weight: 104 kg

DRUGS (2)
  1. YAZ [Suspect]
     Indication: CONTRACEPTION
     Dosage: UNK
     Dates: start: 20071201, end: 20080901
  2. YAZ [Suspect]
     Dosage: UNK
     Dates: start: 20081201, end: 20090801

REACTIONS (4)
  - GALLBLADDER INJURY [None]
  - PAIN [None]
  - ABDOMINAL PAIN [None]
  - CHOLECYSTITIS CHRONIC [None]
